FAERS Safety Report 23227049 (Version 2)
Quarter: 2023Q4

REPORT INFORMATION
  Report Type: Report from Study
  Country: CA (occurrence: CA)
  Receive Date: 20231124
  Receipt Date: 20231130
  Transmission Date: 20240110
  Serious: Yes (Other)
  Sender: FDA-Public Use
  Company Number: CA-TAKEDA-2023TUS064844

PATIENT
  Age: 45 Year
  Sex: Male

DRUGS (14)
  1. VEDOLIZUMAB [Suspect]
     Active Substance: VEDOLIZUMAB
     Indication: Crohn^s disease
     Dosage: 300 MILLIGRAM
     Route: 042
     Dates: start: 20160906
  2. VEDOLIZUMAB [Suspect]
     Active Substance: VEDOLIZUMAB
     Dosage: 300 MILLIGRAM, Q4WEEKS
     Route: 042
     Dates: start: 20210209
  3. VEDOLIZUMAB [Suspect]
     Active Substance: VEDOLIZUMAB
     Dosage: 300 MILLIGRAM, Q4WEEKS
     Route: 042
  4. VEDOLIZUMAB [Suspect]
     Active Substance: VEDOLIZUMAB
     Dosage: 300 MILLIGRAM, Q4WEEKS
     Route: 042
  5. IMOVANE [Concomitant]
     Active Substance: ZOPICLONE
     Dosage: 5 MILLIGRAM
  6. ROSUVASTATIN [Concomitant]
     Active Substance: ROSUVASTATIN
     Dosage: 10 MILLIGRAM
  7. ACETAMINOPHEN\TRAMADOL [Concomitant]
     Active Substance: ACETAMINOPHEN\TRAMADOL
     Dosage: 37.5 MILLIGRAM
  8. MIRTAZAPINE [Concomitant]
     Active Substance: MIRTAZAPINE
     Dosage: 30 MILLIGRAM
  9. MELATONIN [Concomitant]
     Active Substance: MELATONIN
     Dosage: 10 MILLIGRAM
  10. DIMENHYDRINATE [Concomitant]
     Active Substance: DIMENHYDRINATE
     Dosage: 50 MILLIGRAM
  11. CYCLOBENZAPRINE [Concomitant]
     Active Substance: CYCLOBENZAPRINE
     Dosage: 10 MILLIGRAM
  12. DICYCLOMINE [Concomitant]
     Active Substance: DICYCLOMINE HYDROCHLORIDE
     Dosage: 10 MILLIGRAM
  13. BISOPROLOL [Concomitant]
     Active Substance: BISOPROLOL\BISOPROLOL FUMARATE
     Dosage: 5 MILLIGRAM
  14. DULOXETINE [Concomitant]
     Active Substance: DULOXETINE
     Dosage: 60 MILLIGRAM

REACTIONS (14)
  - Haematochezia [Recovered/Resolved]
  - Fibromyalgia [Unknown]
  - Off label use [Unknown]
  - Frequent bowel movements [Unknown]
  - Mucous stools [Unknown]
  - Myalgia [Unknown]
  - Haemoptysis [Recovered/Resolved]
  - Abdominal pain [Unknown]
  - Dyspnoea [Recovered/Resolved]
  - Chills [Unknown]
  - Headache [Unknown]
  - Oropharyngeal pain [Unknown]
  - Fatigue [Unknown]
  - Pyrexia [Unknown]

NARRATIVE: CASE EVENT DATE: 20210209
